FAERS Safety Report 4932826-X (Version None)
Quarter: 2006Q1

REPORT INFORMATION
  Report Type: 
  Country: None (occurrence: None)
  Receive Date: 20060302
  Receipt Date: 20060302
  Transmission Date: 20060701
  Serious: Yes (Hospitalization)
  Sender: FDA-Public Use
  Company Number: None

PATIENT
  Age: 71 Year
  Sex: Male
  Weight: 87.0906 kg

DRUGS (1)
  1. IBUPROFEN [Suspect]
     Indication: ARTHRITIS
     Dosage: 600 MG TID PO
     Route: 048

REACTIONS (3)
  - GASTRITIS [None]
  - LOWER GASTROINTESTINAL HAEMORRHAGE [None]
  - OVERDOSE [None]
